FAERS Safety Report 16811304 (Version 1)
Quarter: 2019Q3

REPORT INFORMATION
  Report Type: Report from Study
  Country: EG (occurrence: EG)
  Receive Date: 20190916
  Receipt Date: 20190916
  Transmission Date: 20191005
  Serious: Yes (Other)
  Sender: FDA-Public Use
  Company Number: EG-BAYER-2019-165686

PATIENT
  Age: 41 Year
  Sex: Female

DRUGS (5)
  1. OMEGA-3 [DOCOSAHEXAENOIC ACID;EICOSAPENTAENOIC ACID] [Concomitant]
     Active Substance: DOCONEXENT\ICOSAPENT
     Indication: NUTRITIONAL SUPPLEMENTATION
     Dosage: 2 DF, QD
     Dates: start: 201812
  2. GABTIN [Concomitant]
     Indication: HYPOAESTHESIA
     Dosage: 1 DF, QD
     Dates: start: 201812
  3. BIOTIN [Concomitant]
     Active Substance: BIOTIN
     Indication: NUTRITIONAL SUPPLEMENTATION
     Dosage: UNK, BID
     Dates: start: 201812
  4. BETAFERON [Suspect]
     Active Substance: INTERFERON BETA-1B
     Indication: MULTIPLE SCLEROSIS
     Dosage: UNK
     Dates: start: 201812
  5. CYMBATEX [Concomitant]
     Indication: SOMNOLENCE
     Dosage: 1 DF, QD
     Dates: start: 201812

REACTIONS (14)
  - Back pain [Not Recovered/Not Resolved]
  - Headache [Recovered/Resolved]
  - Neck pain [Recovered/Resolved]
  - Headache [Not Recovered/Not Resolved]
  - Headache [Not Recovered/Not Resolved]
  - Contusion [Recovering/Resolving]
  - Back pain [Recovered/Resolved]
  - Hypoaesthesia [Recovered/Resolved]
  - Pyrexia [Not Recovered/Not Resolved]
  - Gait inability [Recovered/Resolved]
  - Gait inability [Not Recovered/Not Resolved]
  - Hypoaesthesia [Not Recovered/Not Resolved]
  - Injection site pain [Not Recovered/Not Resolved]
  - Neck pain [Not Recovered/Not Resolved]

NARRATIVE: CASE EVENT DATE: 201812
